FAERS Safety Report 10965139 (Version 1)
Quarter: 2015Q1

REPORT INFORMATION
  Report Type: Other
  Country: GB (occurrence: GB)
  Receive Date: 20150330
  Receipt Date: 20150330
  Transmission Date: 20150721
  Serious: Yes (Other)
  Sender: FDA-Public Use
  Company Number: GB-LUPIN PHARMACEUTICALS INC.-E2B_00003349

PATIENT
  Age: 63 Year
  Sex: Male
  Weight: 79 kg

DRUGS (1)
  1. LISINOPRIL. [Suspect]
     Active Substance: LISINOPRIL
     Indication: HYPERTENSION
     Route: 048
     Dates: start: 20150303, end: 20150310

REACTIONS (5)
  - Pain in extremity [Unknown]
  - Cough [Unknown]
  - Dehydration [Unknown]
  - Renal pain [Unknown]
  - Asthenopia [Unknown]

NARRATIVE: CASE EVENT DATE: 20150305
